FAERS Safety Report 14091180 (Version 1)
Quarter: 2017Q4

REPORT INFORMATION
  Report Type: Spontaneous
  Country: SE (occurrence: SE)
  Receive Date: 20171016
  Receipt Date: 20171016
  Transmission Date: 20180321
  Serious: Yes (Hospitalization)
  Sender: FDA-Public Use
  Company Number: SE-ORION CORPORATION ORION PHARMA-SPIR2017-0020

PATIENT
  Age: 85 Year
  Sex: Female

DRUGS (2)
  1. METOPROLOL. [Suspect]
     Active Substance: METOPROLOL
     Dosage: STRENGTH: 50 MG
     Route: 065
  2. SPIRONOLACTONE (TRADE NAME UNKNOWN) [Suspect]
     Active Substance: SPIRONOLACTONE
     Dosage: STRENGTH: 25 MG
     Route: 065

REACTIONS (1)
  - Hypotension [Unknown]
